FAERS Safety Report 5507394-4 (Version None)
Quarter: 2007Q4

REPORT INFORMATION
  Report Type: 
  Country: None (occurrence: None)
  Receive Date: 20071106
  Receipt Date: 20071030
  Transmission Date: 20080405
  Serious: Yes (Other)
  Sender: FDA-Public Use
  Company Number: US-BAYER-200713567BCC

PATIENT
  Age: 79 Year
  Sex: Female
  Weight: 49 kg

DRUGS (3)
  1. MILK OF MAGNESIA TAB [Suspect]
     Indication: CONSTIPATION
     Dosage: UNIT DOSE: 15 ML
     Route: 048
     Dates: start: 20071029
  2. METOPROLOL [Concomitant]
  3. LIPITOR [Concomitant]

REACTIONS (1)
  - RECTAL HAEMORRHAGE [None]
